FAERS Safety Report 21771859 (Version 17)
Quarter: 2024Q1

REPORT INFORMATION
  Report Type: Spontaneous
  Country: CA (occurrence: CA)
  Receive Date: 20221223
  Receipt Date: 20240226
  Transmission Date: 20240410
  Serious: Yes (Other)
  Sender: FDA-Public Use
  Company Number: CA-CELLTRION INC.-2022CA018370

PATIENT

DRUGS (28)
  1. INFLECTRA [Suspect]
     Active Substance: INFLIXIMAB-DYYB
     Indication: Crohn^s disease
     Dosage: 290 MG, Q 0, 2, 6 WEEK, THEN EVERY 8 WEEKS
     Route: 041
     Dates: start: 20170705, end: 20171122
  2. INFLECTRA [Suspect]
     Active Substance: INFLIXIMAB-DYYB
     Dosage: 700 MG, EVERY 8 WEEKS
     Route: 041
     Dates: start: 20180308, end: 20180716
  3. INFLECTRA [Suspect]
     Active Substance: INFLIXIMAB-DYYB
     Dosage: 12500 UG/KG, EVERY 4 WEEKS
     Route: 041
     Dates: start: 20181029, end: 20190121
  4. INFLECTRA [Suspect]
     Active Substance: INFLIXIMAB-DYYB
     Dosage: 10 MG/KG, EVERY 4 WEEKS
     Route: 041
     Dates: start: 20190401, end: 20220228
  5. INFLECTRA [Suspect]
     Active Substance: INFLIXIMAB-DYYB
     Dosage: 800 MG, EVERY 4 WEEKS
     Route: 041
     Dates: start: 20220331
  6. INFLECTRA [Suspect]
     Active Substance: INFLIXIMAB-DYYB
     Dosage: 800 MG, EVERY 4 WEEKS
     Route: 041
     Dates: start: 20221020
  7. INFLECTRA [Suspect]
     Active Substance: INFLIXIMAB-DYYB
     Dosage: 800 MG, EVERY 4 WEEKS
     Route: 041
     Dates: start: 20221213
  8. INFLECTRA [Suspect]
     Active Substance: INFLIXIMAB-DYYB
     Dosage: 800 MG , EVERY 4 WEEKS
     Route: 041
     Dates: start: 20230111
  9. INFLECTRA [Suspect]
     Active Substance: INFLIXIMAB-DYYB
     Dosage: 800 MG , EVERY 4 WEEKS
     Route: 041
     Dates: start: 20230208
  10. INFLECTRA [Suspect]
     Active Substance: INFLIXIMAB-DYYB
     Dosage: 800 MG, EVERY 4 WEEKS
     Route: 041
     Dates: start: 20230307
  11. INFLECTRA [Suspect]
     Active Substance: INFLIXIMAB-DYYB
     Dosage: 800 MG, EVERY 4 WEEKS (RECEIVED EVERY 6 WEEKS)
     Route: 041
     Dates: start: 20230421
  12. INFLECTRA [Suspect]
     Active Substance: INFLIXIMAB-DYYB
     Dosage: 800 MG, EVERY 4 WEEKS
     Route: 041
     Dates: start: 20230519
  13. INFLECTRA [Suspect]
     Active Substance: INFLIXIMAB-DYYB
     Dosage: 800 MG, EVERY 4 WEEKS
     Route: 041
     Dates: start: 20230616
  14. INFLECTRA [Suspect]
     Active Substance: INFLIXIMAB-DYYB
     Dosage: 800 MG, 6 WEEKS AND 6 DAYS (PRESCRIBED EVERY 4 WEEKS)
     Route: 041
     Dates: start: 20230803
  15. INFLECTRA [Suspect]
     Active Substance: INFLIXIMAB-DYYB
     Dosage: 800 MG, EVERY 4 WEEKS
     Route: 041
     Dates: start: 20230803
  16. INFLECTRA [Suspect]
     Active Substance: INFLIXIMAB-DYYB
     Dosage: 800 MG, EVERY 4 WEEKS
     Route: 041
     Dates: start: 20230831
  17. INFLECTRA [Suspect]
     Active Substance: INFLIXIMAB-DYYB
     Dosage: 800 MG, EVERY 4 WEEKS (AFTER 4 WEEKS AND 1 DAYS)
     Route: 041
     Dates: start: 20230929
  18. INFLECTRA [Suspect]
     Active Substance: INFLIXIMAB-DYYB
     Dosage: 800 MG, EVERY 4 WEEKS (AFTER 4 WEEKS AND 1 DAYS)
     Route: 041
     Dates: start: 20231027
  19. INFLECTRA [Suspect]
     Active Substance: INFLIXIMAB-DYYB
     Dosage: 800 MG, AFTER 4 WEEKS
     Route: 042
     Dates: start: 20231201
  20. INFLECTRA [Suspect]
     Active Substance: INFLIXIMAB-DYYB
     Dosage: 800 MG,EVERY 4 WEEKS
     Route: 042
     Dates: start: 20240102
  21. INFLECTRA [Suspect]
     Active Substance: INFLIXIMAB-DYYB
     Dosage: 800 MG,EVERY 4 WEEKS (6 WEEKS AND 3 DAYS AFTER LAST TREATMENT)
     Route: 042
     Dates: start: 20240216
  22. NOVORAPID [Concomitant]
     Active Substance: INSULIN ASPART
     Dosage: UNK
  23. LEVEMIR [Concomitant]
     Active Substance: INSULIN DETEMIR
     Dosage: UNK
  24. METHOTREXATE [Concomitant]
     Active Substance: METHOTREXATE
     Dosage: 1 DF COMPLETE DOSAGE INFORMATION NOT AVAILABLE. 3 TABLETS EVERY WEEK
     Route: 048
     Dates: start: 20170705
  25. MELATONIN [Concomitant]
     Active Substance: MELATONIN
     Dosage: UNK
  26. RAMIPRIL [Concomitant]
     Active Substance: RAMIPRIL
     Dosage: UNK
  27. SYNTHROID [Concomitant]
     Active Substance: LEVOTHYROXINE SODIUM
     Dosage: UNK
  28. TYLENOL [Concomitant]
     Active Substance: ACETAMINOPHEN
     Dosage: UNK

REACTIONS (16)
  - Condition aggravated [Recovering/Resolving]
  - Drug level above therapeutic [Unknown]
  - Cough [Not Recovered/Not Resolved]
  - Illness [Unknown]
  - Mouth ulceration [Recovered/Resolved]
  - Aphthous ulcer [Recovered/Resolved]
  - Erythema nodosum [Recovered/Resolved]
  - Pain [Not Recovered/Not Resolved]
  - Oropharyngeal pain [Not Recovered/Not Resolved]
  - Pyrexia [Not Recovered/Not Resolved]
  - Viral infection [Unknown]
  - Arthralgia [Recovered/Resolved]
  - Headache [Not Recovered/Not Resolved]
  - Asthenia [Unknown]
  - Malaise [Recovering/Resolving]
  - Nasopharyngitis [Not Recovered/Not Resolved]

NARRATIVE: CASE EVENT DATE: 20221024
